FAERS Safety Report 5011605-1 (Version None)
Quarter: 2006Q2

REPORT INFORMATION
  Report Type: 
  Country: None (occurrence: None)
  Receive Date: 20060404
  Receipt Date: 20060117
  Transmission Date: 20061013
  Serious: No
  Sender: FDA-Public Use
  Company Number: US200601002847

PATIENT
  Sex: Female

DRUGS (1)
  1. CYMBALTA [Suspect]
     Dosage: SEE IMAGE
     Dates: start: 20051201

REACTIONS (4)
  - CHILLS [None]
  - NAUSEA [None]
  - NERVOUSNESS [None]
  - TREMOR [None]
